FAERS Safety Report 6525003-2 (Version None)
Quarter: 2010Q1

REPORT INFORMATION
  Report Type: 
  Country: None (occurrence: None)
  Receive Date: 20100104
  Receipt Date: 20091221
  Transmission Date: 20100710
  Serious: Yes (Other)
  Sender: FDA-Public Use
  Company Number: PHHY2009US57893

PATIENT
  Sex: Female

DRUGS (1)
  1. GLEEVEC [Suspect]
     Indication: CHRONIC MYELOID LEUKAEMIA
     Dosage: 400 MG, QD
     Route: 048
     Dates: start: 20021001

REACTIONS (5)
  - ABSCESS DRAINAGE [None]
  - BREAST INFECTION [None]
  - BREAST LUMP REMOVAL [None]
  - IMPAIRED HEALING [None]
  - SURGERY [None]
